FAERS Safety Report 10082725 (Version 1)
Quarter: 2014Q2

REPORT INFORMATION
  Report Type: Spontaneous
  Country: US (occurrence: US)
  Receive Date: 20140416
  Receipt Date: 20140416
  Transmission Date: 20141212
  Serious: Yes (Other)
  Sender: FDA-Public Use
  Company Number: US-AMGEN INC.-USASP2014025952

PATIENT
  Sex: 0

DRUGS (2)
  1. XGEVA [Suspect]
     Indication: METASTASES TO BONE
     Dosage: UNK
     Route: 065
     Dates: start: 201107
  2. FASLODEX                           /01285001/ [Concomitant]
     Dosage: UNK
     Dates: start: 201107

REACTIONS (6)
  - Spinal disorder [Unknown]
  - Hypoaesthesia [Recovering/Resolving]
  - Gait disturbance [Recovering/Resolving]
  - Back pain [Unknown]
  - Balance disorder [Recovering/Resolving]
  - Impaired driving ability [Recovering/Resolving]
